FAERS Safety Report 11771778 (Version 1)
Quarter: 2015Q4

REPORT INFORMATION
  Report Type: Spontaneous
  Country: US (occurrence: None)
  Receive Date: 20151123
  Receipt Date: 20151123
  Transmission Date: 20160304
  Serious: No
  Sender: FDA-Public Use
  Company Number: None

PATIENT
  Age: 26 Day
  Sex: Female
  Weight: 120.2 kg

DRUGS (8)
  1. ISOTRETINOIN 30MG TEVA [Suspect]
     Active Substance: ISOTRETINOIN
     Indication: ACNE
     Dosage: 3 PILLS
     Route: 048
     Dates: start: 20150818, end: 20151105
  2. NORETHINDRONE. [Concomitant]
     Active Substance: NORETHINDRONE
  3. BUPROPION. [Concomitant]
     Active Substance: BUPROPION
  4. LORAZEPAM. [Concomitant]
     Active Substance: LORAZEPAM
  5. ZOLPIDEM TARTRATE. [Concomitant]
     Active Substance: ZOLPIDEM TARTRATE
  6. CETIRIZINE HYDROCHLORIDE. [Concomitant]
     Active Substance: CETIRIZINE HYDROCHLORIDE
  7. VENLAFAXINE [Concomitant]
     Active Substance: VENLAFAXINE HYDROCHLORIDE
  8. IBUPROFEN. [Concomitant]
     Active Substance: IBUPROFEN

REACTIONS (5)
  - Depression [None]
  - Mood altered [None]
  - Anxiety [None]
  - Abnormal behaviour [None]
  - Thinking abnormal [None]

NARRATIVE: CASE EVENT DATE: 20151012
